FAERS Safety Report 25665040 (Version 1)
Quarter: 2025Q3

REPORT INFORMATION
  Report Type: Report from Study
  Country: AR (occurrence: AR)
  Receive Date: 20250811
  Receipt Date: 20250811
  Transmission Date: 20251020
  Serious: Yes (Other)
  Sender: NOVARTIS
  Company Number: AR-002147023-NVSC2025AR118908

PATIENT
  Age: 56 Year
  Sex: Female

DRUGS (4)
  1. KISQALI [Suspect]
     Active Substance: RIBOCICLIB SUCCINATE
     Indication: Breast cancer metastatic
     Dosage: 600 MG, QD
     Route: 048
     Dates: start: 20250707
  2. LETROZOLE [Suspect]
     Active Substance: LETROZOLE
     Indication: Breast cancer metastatic
     Dosage: 2.5 MG, QD
     Route: 048
     Dates: start: 20250707
  3. Polper b12 [Concomitant]
     Indication: Breast cancer metastatic
     Dosage: 1 DOSAGE FORM, QD (FLASK)
     Route: 065
     Dates: start: 20250615
  4. Anemidox ferrum [Concomitant]
     Indication: Product used for unknown indication
     Dosage: 2 DOSAGE FORM, QD (TABLET)
     Route: 065
     Dates: start: 20250725

REACTIONS (3)
  - Thrombosis [Recovered/Resolved]
  - Nodule [Recovered/Resolved]
  - Varicose vein [Unknown]

NARRATIVE: CASE EVENT DATE: 20250719
